FAERS Safety Report 5057343-0 (Version None)
Quarter: 2006Q3

REPORT INFORMATION
  Report Type: 
  Country: None (occurrence: None)
  Receive Date: 20060721
  Receipt Date: 20050822
  Transmission Date: 20061208
  Serious: No
  Sender: FDA-Public Use
  Company Number: US-GLAXOSMITHKLINE-A0571229A

PATIENT
  Age: 76 Year
  Sex: Male

DRUGS (5)
  1. AVANDIA [Suspect]
     Dosage: 4MG PER DAY
     Route: 048
     Dates: start: 20050819, end: 20050819
  2. NOVOLIN 70/30 [Concomitant]
  3. HYTRIN [Concomitant]
  4. LESCOL [Concomitant]
  5. BETA PROSTATE [Concomitant]

REACTIONS (2)
  - DIZZINESS [None]
  - NAUSEA [None]
